FAERS Safety Report 20203394 (Version 1)
Quarter: 2021Q4

REPORT INFORMATION
  Report Type: Spontaneous
  Country: DE (occurrence: DE)
  Receive Date: 20211218
  Receipt Date: 20211218
  Transmission Date: 20220303
  Serious: Yes (Other)
  Sender: FDA-Public Use
  Company Number: DE-SA-2021SA141098

PATIENT

DRUGS (1)
  1. LIBTAYO [Suspect]
     Active Substance: CEMIPLIMAB-RWLC
     Indication: Squamous cell carcinoma
     Dosage: 350 MG

REACTIONS (7)
  - Pulmonary sarcoidosis [Recovering/Resolving]
  - Lymphadenopathy [Recovering/Resolving]
  - Condition aggravated [Recovering/Resolving]
  - Granuloma [Recovering/Resolving]
  - Angiotensin converting enzyme decreased [Recovering/Resolving]
  - Interleukin-2 receptor increased [Recovering/Resolving]
  - CD4/CD8 ratio increased [Recovering/Resolving]
